FAERS Safety Report 4406816-X (Version None)
Quarter: 2004Q3

REPORT INFORMATION
  Report Type: 
  Country: None (occurrence: None)
  Receive Date: 20040715
  Receipt Date: 20040702
  Transmission Date: 20050211
  Serious: Yes (Other)
  Sender: FDA-Public Use
  Company Number: IT-JNJFOC-20040700671

PATIENT
  Age: 23 Year
  Sex: Male

DRUGS (2)
  1. REMICADE [Suspect]
     Indication: ANKYLOSING SPONDYLITIS
     Dosage: 500 MG, INTRAVENOUS
     Route: 042
     Dates: start: 20031023, end: 20040203
  2. METHOTREXATE [Concomitant]

REACTIONS (3)
  - COUGH [None]
  - LARYNGEAL OEDEMA [None]
  - RASH [None]
